FAERS Safety Report 11312461 (Version 2)
Quarter: 2015Q3

REPORT INFORMATION
  Report Type: Spontaneous
  Country: PT (occurrence: PT)
  Receive Date: 20150727
  Receipt Date: 20150728
  Transmission Date: 20151125
  Serious: Yes (Other)
  Sender: FDA-Public Use
  Company Number: PHHY2015PT087916

PATIENT
  Sex: Male
  Weight: 2.36 kg

DRUGS (7)
  1. HYDROCORTISONE. [Suspect]
     Active Substance: HYDROCORTISONE
     Indication: FOETAL EXPOSURE DURING PREGNANCY
     Route: 064
  2. METHYLPREDNISOLONE. [Suspect]
     Active Substance: METHYLPREDNISOLONE
     Dosage: MATERNAL DOSE: 64 MG
     Route: 064
  3. AMPICILLIN [Suspect]
     Active Substance: AMPICILLIN
     Indication: FOETAL EXPOSURE DURING PREGNANCY
     Route: 064
  4. CLEMASTINE FUMARATE SANDOZ [Suspect]
     Active Substance: CLEMASTINE FUMARATE
     Indication: FOETAL EXPOSURE DURING PREGNANCY
     Route: 064
  5. OXYTOCIN. [Suspect]
     Active Substance: OXYTOCIN
     Indication: FOETAL EXPOSURE DURING PREGNANCY
     Dosage: MATERNAL DOSE: 5 IU IN 500 ML 5% GLUCOSE SOLUTION
     Route: 064
  6. PYRIDOSTIGMINE [Suspect]
     Active Substance: PYRIDOSTIGMINE
     Indication: FOETAL EXPOSURE DURING PREGNANCY
     Dosage: MATERNAL DOSE: 60 MG PER OS FOUR TIMES A DAY
     Route: 064
  7. METHYLPREDNISOLONE. [Suspect]
     Active Substance: METHYLPREDNISOLONE
     Indication: FOETAL EXPOSURE DURING PREGNANCY
     Dosage: MATERNAL DOSE: 125 MG
     Route: 064

REACTIONS (3)
  - Low birth weight baby [Unknown]
  - Premature baby [Unknown]
  - Foetal exposure during pregnancy [Unknown]
